FAERS Safety Report 9226957 (Version 2)
Quarter: 2013Q2

REPORT INFORMATION
  Report Type: Spontaneous
  Country: US (occurrence: US)
  Receive Date: 20130412
  Receipt Date: 20130429
  Transmission Date: 20140414
  Serious: No
  Sender: FDA-Public Use
  Company Number: US-BIOGENIDEC-2013BI031787

PATIENT
  Age: 50 Year
  Sex: Male

DRUGS (6)
  1. TYSABRI [Suspect]
     Indication: MULTIPLE SCLEROSIS
     Route: 042
     Dates: start: 20130215
  2. LAMOTRIGINE [Concomitant]
     Indication: ANXIETY
  3. PREDNISONE [Concomitant]
     Indication: PREMEDICATION
  4. AMLODIPINE [Concomitant]
     Indication: HYPERTENSION
  5. NEXIUM [Concomitant]
     Indication: GASTROOESOPHAGEAL REFLUX DISEASE
  6. CRESTOR [Concomitant]
     Indication: BLOOD CHOLESTEROL

REACTIONS (3)
  - Back pain [Recovered/Resolved]
  - Heart sounds abnormal [Recovered/Resolved]
  - Headache [Recovered/Resolved]
